FAERS Safety Report 7564046-7 (Version None)
Quarter: 2011Q2

REPORT INFORMATION
  Report Type: 
  Country: None (occurrence: None)
  Receive Date: 20110622
  Receipt Date: 20110616
  Transmission Date: 20111010
  Serious: Yes (Hospitalization, Other)
  Sender: FDA-Public Use
  Company Number: US-ELI_LILLY_AND_COMPANY-US201004000731

PATIENT
  Sex: Male
  Weight: 81.633 kg

DRUGS (13)
  1. LOPRESSOR [Concomitant]
     Dosage: 25 MG, BID
  2. DILAUDID [Concomitant]
  3. PERCOCET [Concomitant]
  4. ACTOS [Concomitant]
  5. MULTI-VITAMINS [Concomitant]
  6. BYETTA [Suspect]
     Dosage: UNK, UNKNOWN
     Route: 065
     Dates: start: 20060101, end: 20090301
  7. MEVACOR [Concomitant]
  8. METFORMIN HCL [Concomitant]
  9. INSULIN [Concomitant]
  10. LOVASTATIN [Concomitant]
  11. PRILOSEC [Concomitant]
     Dosage: 40 MG, QD
  12. LISINOPRIL [Concomitant]
  13. ASPIRIN [Concomitant]

REACTIONS (4)
  - PANCREATITIS ACUTE [None]
  - PANCREATIC PSEUDOCYST [None]
  - PANCREATITIS [None]
  - PANCREATITIS NECROTISING [None]
